FAERS Safety Report 7179252-3 (Version None)
Quarter: 2010Q4

REPORT INFORMATION
  Report Type: 
  Country: None (occurrence: None)
  Receive Date: 20101208
  Receipt Date: 20101122
  Transmission Date: 20110411
  Serious: Yes (Other)
  Sender: FDA-Public Use
  Company Number: 2010005183

PATIENT

DRUGS (2)
  1. TARCEVA [Suspect]
     Indication: LUNG CANCER METASTATIC
     Dosage: (MG)
  2. BEVACIZUMAB [Suspect]
     Indication: LUNG CANCER METASTATIC
     Dosage: INTRAVENOUS
     Route: 042

REACTIONS (2)
  - DEMYELINATION [None]
  - MUSCULAR WEAKNESS [None]
